FAERS Safety Report 9262914 (Version 3)
Quarter: 2013Q3

REPORT INFORMATION
  Report Type: Spontaneous
  Country: FR (occurrence: FR)
  Receive Date: 20130430
  Receipt Date: 20130711
  Transmission Date: 20140515
  Serious: Yes (Death, Hospitalization, Other)
  Sender: FDA-Public Use
  Company Number: FR-PFIZER INC-2013130782

PATIENT
  Age: 68 Year
  Sex: Female

DRUGS (6)
  1. INLYTA [Suspect]
     Indication: RENAL CANCER
     Dosage: 5 MG, 2X/DAY
     Route: 048
     Dates: start: 20130302, end: 20130309
  2. SKENAN [Concomitant]
  3. ACTISKENAN [Concomitant]
  4. INEXIUM [Concomitant]
     Dosage: 40
  5. LEVOTHYROX [Concomitant]
  6. LOXEN [Concomitant]

REACTIONS (1)
  - Posterior reversible encephalopathy syndrome [Fatal]
